FAERS Safety Report 20449556 (Version 1)
Quarter: 2022Q1

REPORT INFORMATION
  Report Type: Report from Study
  Country: DE (occurrence: None)
  Receive Date: 20220209
  Receipt Date: 20220209
  Transmission Date: 20220423
  Serious: Yes (Other)
  Sender: FDA-Public Use
  Company Number: DE-Merck Healthcare KGaA-9297066

PATIENT
  Age: 34 Year
  Sex: Female

DRUGS (2)
  1. CHORIOGONADOTROPIN ALFA [Suspect]
     Active Substance: CHORIOGONADOTROPIN ALFA
     Indication: Assisted reproductive technology
     Route: 058
     Dates: start: 202112
  2. CHORIOGONADOTROPIN ALFA [Suspect]
     Active Substance: CHORIOGONADOTROPIN ALFA
     Route: 058
     Dates: start: 202201

REACTIONS (3)
  - Sudden hearing loss [Not Recovered/Not Resolved]
  - Tinnitus [Not Recovered/Not Resolved]
  - Ear discomfort [Unknown]

NARRATIVE: CASE EVENT DATE: 20211201
